FAERS Safety Report 7088573-4 (Version None)
Quarter: 2010Q4

REPORT INFORMATION
  Report Type: 
  Country: None (occurrence: None)
  Receive Date: 20101108
  Receipt Date: 20101025
  Transmission Date: 20110411
  Serious: Yes (Other)
  Sender: FDA-Public Use
  Company Number: US-JNJFOC-20101007091

PATIENT
  Sex: Female
  Weight: 68.04 kg

DRUGS (3)
  1. REMICADE [Suspect]
     Indication: CROHN'S DISEASE
     Route: 042
  2. SINGULAIR [Concomitant]
     Indication: ASTHMA
     Route: 048
  3. ADVAIR DISKUS 100/50 [Concomitant]
     Indication: ASTHMA
     Route: 055

REACTIONS (5)
  - ALOPECIA [None]
  - DYSPNOEA [None]
  - MECHANICAL URTICARIA [None]
  - TRICHORRHEXIS [None]
  - WEIGHT INCREASED [None]
